FAERS Safety Report 5845951-6 (Version None)
Quarter: 2008Q3

REPORT INFORMATION
  Report Type: 
  Country: None (occurrence: None)
  Receive Date: 20080814
  Receipt Date: 20080802
  Transmission Date: 20090109
  Serious: Yes (Other)
  Sender: FDA-Public Use
  Company Number: US-PFIZER INC-2008064467

PATIENT
  Sex: Male
  Weight: 132.5 kg

DRUGS (7)
  1. CAVERJECT [Suspect]
     Indication: ERECTILE DYSFUNCTION
  2. VIAGRA [Suspect]
     Indication: ERECTILE DYSFUNCTION
     Route: 048
     Dates: start: 20080301, end: 20080301
  3. GLUCOVANCE [Concomitant]
  4. GLYBURIDE [Concomitant]
  5. VITAMIN TAB [Concomitant]
  6. TAMSULOSIN HCL [Concomitant]
  7. DOXYCYCLINE [Concomitant]

REACTIONS (7)
  - DRUG INEFFECTIVE [None]
  - ERECTION INCREASED [None]
  - HEADACHE [None]
  - LIMB INJURY [None]
  - LOCALISED INFECTION [None]
  - NASAL CONGESTION [None]
  - PAINFUL ERECTION [None]
